FAERS Safety Report 25135892 (Version 1)
Quarter: 2025Q1

REPORT INFORMATION
  Report Type: Report from Study
  Country: US (occurrence: US)
  Receive Date: 20250328
  Receipt Date: 20250328
  Transmission Date: 20250409
  Serious: No
  Sender: DR REDDYS
  Company Number: US-DRL-USA-USA/2025/03/004368

PATIENT
  Age: 14 Year
  Sex: Female
  Weight: 49.62 kg

DRUGS (1)
  1. JAVYGTOR [Suspect]
     Active Substance: SAPROPTERIN DIHYDROCHLORIDE
     Indication: Phenylketonuria
     Dosage: DISSOLVE AND TAKE TWO 500 MG PACKET ONCE DAILY AS DIRECTED WITH MEAL FOR A TOTAL DAILY DOSE OF 1000M
     Route: 048

REACTIONS (3)
  - Pain in extremity [Unknown]
  - Overdose [Unknown]
  - Product prescribing error [Unknown]
